FAERS Safety Report 15681493 (Version 1)
Quarter: 2018Q4

REPORT INFORMATION
  Report Type: Report from Study
  Country: US (occurrence: US)
  Receive Date: 20181203
  Receipt Date: 20181203
  Transmission Date: 20190205
  Serious: Yes (Other)
  Sender: FDA-Public Use
  Company Number: US-SA-2018SA314571

PATIENT
  Age: 88 Year
  Sex: Male

DRUGS (2)
  1. NO STUDY DRUG GIVEN [Suspect]
     Active Substance: UNSPECIFIED INGREDIENT
     Dosage: UNK UNK, UNK
  2. RENVELA [Suspect]
     Active Substance: SEVELAMER CARBONATE
     Dosage: UNK, UNK
     Route: 048

REACTIONS (4)
  - Choking [Recovered/Resolved]
  - Myocardial infarction [Recovered/Resolved]
  - Renal disorder [Not Recovered/Not Resolved]
  - Dysphagia [Recovered/Resolved]
